FAERS Safety Report 5252945-0 (Version None)
Quarter: 2007Q1

REPORT INFORMATION
  Report Type: 
  Country: None (occurrence: None)
  Receive Date: 20070301
  Receipt Date: 20070219
  Transmission Date: 20070707
  Serious: Yes (Other)
  Sender: FDA-Public Use
  Company Number: 2007AC00290

PATIENT
  Age: 597 Month
  Sex: Male

DRUGS (1)
  1. NEXIUM [Suspect]
     Dosage: 1 OR 2 DAILY
     Route: 048
     Dates: start: 20051101, end: 20070201

REACTIONS (1)
  - APLASTIC ANAEMIA [None]
